FAERS Safety Report 8057495-4 (Version None)
Quarter: 2012Q1

REPORT INFORMATION
  Report Type: 
  Country: None (occurrence: None)
  Receive Date: 20120119
  Receipt Date: 20120110
  Transmission Date: 20120608
  Serious: Yes (Other)
  Sender: FDA-Public Use
  Company Number: US-ASTRAZENECA-2012SE02216

PATIENT
  Age: 69 Year
  Sex: Female
  Weight: 69.4 kg

DRUGS (2)
  1. ARIMIDEX [Suspect]
     Route: 048
  2. FASLODEX [Suspect]
     Indication: BREAST CANCER
     Route: 030
     Dates: end: 20120106

REACTIONS (5)
  - NAUSEA [None]
  - BREAST CANCER RECURRENT [None]
  - TENSION [None]
  - DRUG DOSE OMISSION [None]
  - METASTASIS [None]
